FAERS Safety Report 6882295-8 (Version None)
Quarter: 2010Q3

REPORT INFORMATION
  Report Type: 
  Country: None (occurrence: None)
  Receive Date: 20100729
  Receipt Date: 20100721
  Transmission Date: 20110219
  Serious: Yes (Hospitalization, Other)
  Sender: FDA-Public Use
  Company Number: US-BRISTOL-MYERS SQUIBB COMPANY-15204126

PATIENT
  Age: 12 Year
  Sex: Female
  Weight: 72 kg

DRUGS (5)
  1. SPRYCEL [Suspect]
     Indication: B PRECURSOR TYPE ACUTE LEUKAEMIA
     Dosage: COURSE:1
     Route: 048
     Dates: start: 20100406, end: 20100419
  2. DAUNORUBICIN HCL [Suspect]
     Indication: B PRECURSOR TYPE ACUTE LEUKAEMIA
     Dosage: COURSE:1
     Route: 042
     Dates: start: 20100406, end: 20100414
  3. ONCASPAR [Suspect]
     Indication: B PRECURSOR TYPE ACUTE LEUKAEMIA
     Dosage: COURSE:1
     Route: 030
     Dates: start: 20100326, end: 20100326
  4. PREDNISONE [Suspect]
     Indication: B PRECURSOR TYPE ACUTE LEUKAEMIA
     Dosage: 13APR-19APR10,624MG COURSE:1
     Route: 048
     Dates: start: 20100406, end: 20100419
  5. VINCRISTINE SULFATE [Suspect]
     Indication: B PRECURSOR TYPE ACUTE LEUKAEMIA
     Dosage: COURSE:1
     Route: 042
     Dates: start: 20100406, end: 20100413

REACTIONS (4)
  - DIARRHOEA [None]
  - HYPOCALCAEMIA [None]
  - HYPONATRAEMIA [None]
  - HYPOTENSION [None]
